FAERS Safety Report 6804370-6 (Version None)
Quarter: 2010Q2

REPORT INFORMATION
  Report Type: 
  Country: None (occurrence: None)
  Receive Date: 20100628
  Receipt Date: 20070402
  Transmission Date: 20101027
  Serious: Yes (Other)
  Sender: FDA-Public Use
  Company Number: US-PFIZER INC-2007017289

PATIENT
  Sex: Female

DRUGS (2)
  1. GEODON [Suspect]
     Indication: BIPOLAR DISORDER
     Dosage: BID:EVERY DAY
     Route: 048
     Dates: start: 20061204, end: 20070116
  2. GEODON [Suspect]
     Indication: MANIA

REACTIONS (1)
  - TARDIVE DYSKINESIA [None]
